FAERS Safety Report 11361806 (Version 2)
Quarter: 2015Q4

REPORT INFORMATION
  Report Type: Report from Study
  Country: NO (occurrence: NO)
  Receive Date: 20150810
  Receipt Date: 20151008
  Transmission Date: 20160304
  Serious: Yes (Other)
  Sender: FDA-Public Use
  Company Number: NO-TEVA-583789ISR

PATIENT
  Sex: Female

DRUGS (2)
  1. LEVETIRACETAM. [Suspect]
     Active Substance: LEVETIRACETAM
     Indication: EPILEPSY
     Dosage: 2250 UNKNOWN DAILY; DAILY DOSE: 2250 (UNIT UNSPECIFIED)
  2. ESLICARBAZEPINE [Suspect]
     Active Substance: ESLICARBAZEPINE
     Indication: EPILEPSY

REACTIONS (2)
  - Pregnancy [Unknown]
  - Abortion spontaneous [Unknown]
